FAERS Safety Report 8915789 (Version 1)
Quarter: 2012Q4

REPORT INFORMATION
  Report Type: 
  Country: SE (occurrence: SE)
  Receive Date: 20121119
  Receipt Date: 20121119
  Transmission Date: 20130627
  Serious: Yes (Hospitalization, Other)
  Sender: FDA-Public Use
  Company Number: SE-PFIZER INC-2012284427

PATIENT
  Age: 57 Year
  Sex: Female
  Weight: 88 kg

DRUGS (13)
  1. GENOTROPIN [Suspect]
     Indication: GROWTH HORMONE DEFICIENCY
     Dosage: 0.53 mg, 1x/day,7 injections/week
     Route: 058
     Dates: start: 19990226
  2. CORTISONE ACETATE [Concomitant]
     Indication: ACTH DECREASED
     Dosage: UNK
     Dates: start: 19910901
  3. DESMOPRESSIN [Concomitant]
     Indication: ADH DECREASED
     Dosage: UNK
     Dates: start: 19910901
  4. ESTRACOMB [Concomitant]
     Indication: LUTEINISING HORMONE DEFICIENCY
     Dosage: UNK
     Dates: start: 19930301
  5. ESTRACOMB [Concomitant]
     Indication: FOLLICLE-STIMULATING HORMONE DEFICIENCY
  6. ESTRACOMB [Concomitant]
     Indication: OVARIAN DISORDER
  7. ESTRACOMB [Concomitant]
     Indication: HYPOGONADISM
  8. CITALOPRAM [Concomitant]
     Indication: DEPRESSIVE DISORDER
     Dosage: UNK
     Dates: start: 19990116
  9. MIANSERIN [Concomitant]
     Indication: DEPRESSIVE DISORDER
     Dosage: UNK
     Dates: start: 19990116
  10. ALPHAGAN [Concomitant]
     Indication: GASTRITIS
     Dosage: UNK
     Dates: start: 20020927
  11. ALPHAGAN [Concomitant]
     Indication: DUODENITIS
  12. LEVOTHYROXINE [Concomitant]
     Indication: TSH DECREASED
     Dosage: UNK
     Dates: start: 19910901
  13. LEVOTHYROXINE [Concomitant]
     Indication: PRIMARY HYPOTHYROIDISM

REACTIONS (1)
  - Gastrointestinal infection [Unknown]
